FAERS Safety Report 4774565-4 (Version None)
Quarter: 2005Q3

REPORT INFORMATION
  Report Type: 
  Country: None (occurrence: None)
  Receive Date: 20050914
  Receipt Date: 20041104
  Transmission Date: 20060218
  Serious: Yes (Death, Hospitalization)
  Sender: FDA-Public Use
  Company Number: 163-20785-04110106

PATIENT
  Age: 64 Year
  Sex: Male

DRUGS (1)
  1. THALOMID [Suspect]
     Indication: COLON CANCER
     Dosage: 200 MG, QD, ORAL
     Route: 048
     Dates: start: 20040701, end: 20040101

REACTIONS (3)
  - ABDOMINAL DISTENSION [None]
  - DEATH [None]
  - OEDEMA PERIPHERAL [None]
